FAERS Safety Report 24961944 (Version 1)
Quarter: 2025Q1

REPORT INFORMATION
  Report Type: Spontaneous
  Country: CN (occurrence: CN)
  Receive Date: 20250212
  Receipt Date: 20250212
  Transmission Date: 20250408
  Serious: Yes (Other)
  Sender: EISAI
  Company Number: CN-Eisai-EC-2025-183900

PATIENT
  Age: 55 Year
  Sex: Male
  Weight: 73 kg

DRUGS (2)
  1. LENVIMA [Suspect]
     Active Substance: LENVATINIB
     Indication: Hepatocellular carcinoma
     Dates: start: 20250113, end: 20250206
  2. TISLELIZUMAB [Suspect]
     Active Substance: TISLELIZUMAB
     Indication: Hepatocellular carcinoma

REACTIONS (1)
  - Pancreatitis acute [Unknown]

NARRATIVE: CASE EVENT DATE: 20250206
